FAERS Safety Report 23015868 (Version 13)
Quarter: 2025Q1

REPORT INFORMATION
  Report Type: Spontaneous
  Country: KR (occurrence: KR)
  Receive Date: 20231002
  Receipt Date: 20250312
  Transmission Date: 20250409
  Serious: Yes (Other)
  Sender: PFIZER
  Company Number: KR-PFIZER INC-PV202300146011

PATIENT
  Age: 52 Year
  Sex: Female

DRUGS (9)
  1. LORLATINIB [Suspect]
     Active Substance: LORLATINIB
     Indication: Lung neoplasm malignant
     Dosage: 100 MG, 1X/DAY (TO TAKE AT SAME TIME)
     Route: 048
     Dates: start: 202301
  2. LORLATINIB [Suspect]
     Active Substance: LORLATINIB
     Dosage: 100 MG, 1X/DAY FOR 28 DAYS; TO TAKE AT SAME TIME
     Route: 048
  3. LORLATINIB [Suspect]
     Active Substance: LORLATINIB
     Dosage: 100 MG, 1X/DAY FOR 30 DAYS
     Route: 048
  4. LORLATINIB [Suspect]
     Active Substance: LORLATINIB
     Dosage: 100 MG, 1X/DAY FOR 7 DAYS; TO TAKE AT SAME TIME
     Route: 048
  5. LORLATINIB [Suspect]
     Active Substance: LORLATINIB
     Dosage: 1 TABLET ONCE A DAY AT A REGULAR TIME FOR 14 DAYS
     Route: 048
     Dates: start: 20240320
  6. LORLATINIB [Suspect]
     Active Substance: LORLATINIB
     Dosage: 1 TABLET ONCE A DAY AT A REGULAR TIME FOR 10 DAYS
     Route: 048
  7. LORLATINIB [Suspect]
     Active Substance: LORLATINIB
     Dosage: 100 MG, ALTERNATE DAY (AT A REGULAR TIME)
     Route: 048
  8. LORLATINIB [Suspect]
     Active Substance: LORLATINIB
     Dosage: 100 MG, ALTERNATE DAY FOR 7 DAYS
     Route: 048
  9. LORLATINIB [Suspect]
     Active Substance: LORLATINIB
     Dosage: 1 TABLET ONCE A DAY AT A REGULAR TIME FOR 10 DAYS
     Route: 048

REACTIONS (7)
  - Obesity [Not Recovered/Not Resolved]
  - Oedema [Not Recovered/Not Resolved]
  - Hyperlipidaemia [Not Recovered/Not Resolved]
  - Bronchitis [Unknown]
  - Urticaria [Unknown]
  - Dry eye [Unknown]
  - Off label use [Unknown]

NARRATIVE: CASE EVENT DATE: 20230101
